FAERS Safety Report 19361576 (Version 1)
Quarter: 2021Q2

REPORT INFORMATION
  Report Type: Spontaneous
  Country: US (occurrence: US)
  Receive Date: 20210601
  Receipt Date: 20210601
  Transmission Date: 20210717
  Serious: Yes (Death, Other)
  Sender: FDA-Public Use
  Company Number: US-SA-2021SA180149

PATIENT
  Age: 57 Year
  Sex: Female

DRUGS (1)
  1. ZANTAC [Suspect]
     Active Substance: RANITIDINE HYDROCHLORIDE
     Indication: DYSPEPSIA
     Dosage: UNK, QD
     Dates: start: 199105, end: 200905

REACTIONS (5)
  - Hepatic cancer [Fatal]
  - Breast cancer [Fatal]
  - Colorectal cancer [Fatal]
  - Lung neoplasm malignant [Fatal]
  - Renal cancer [Fatal]

NARRATIVE: CASE EVENT DATE: 20081101
